FAERS Safety Report 4598246-5 (Version None)
Quarter: 2005Q1

REPORT INFORMATION
  Report Type: 
  Country: None (occurrence: None)
  Receive Date: 20050302
  Receipt Date: 20050222
  Transmission Date: 20050727
  Serious: Yes (Other)
  Sender: FDA-Public Use
  Company Number: 26254

PATIENT
  Age: 54 Year
  Sex: Female

DRUGS (5)
  1. MAXAIR AUTOHALER (CFC)(PIRBUTEROL ACETATE)(200 % AEROSOL FOR INHALATIO [Suspect]
     Indication: DYSPNOEA
     Dosage: 400 MCG, 4 IN 1 DAY(S), RESPIRATORY (INHALATION)
     Route: 055
     Dates: start: 20041201, end: 20050221
  2. INSULIN [Suspect]
     Dates: start: 20050215
  3. LASIX [Suspect]
     Dates: start: 20050205
  4. ACTOS [Suspect]
  5. GLUCOPHAGE [Suspect]

REACTIONS (3)
  - DYSPNOEA EXACERBATED [None]
  - HEPATIC STEATOSIS [None]
  - OEDEMA PERIPHERAL [None]
